FAERS Safety Report 14474983 (Version 1)
Quarter: 2018Q1

REPORT INFORMATION
  Report Type: Spontaneous
  Country: CN (occurrence: CN)
  Receive Date: 20180201
  Receipt Date: 20180201
  Transmission Date: 20180509
  Serious: Yes (Other)
  Sender: FDA-Public Use
  Company Number: CN-PFIZER INC-2018043604

PATIENT
  Age: 54 Year
  Sex: Male
  Weight: 90 kg

DRUGS (2)
  1. DIFLUCAN [Suspect]
     Active Substance: FLUCONAZOLE
     Indication: LUNG INFECTION
     Dosage: 50 MG, 1X/DAY
     Route: 048
     Dates: start: 20171027, end: 20171102
  2. KAI SI /03500301/ [Suspect]
     Active Substance: CEFOPERAZONE\TAZOBACTAM SODIUM
     Indication: LUNG INFECTION
     Dosage: 2.25 G, 2X/DAY
     Route: 041
     Dates: start: 20171020, end: 20171102

REACTIONS (1)
  - Epilepsy [Recovered/Resolved]

NARRATIVE: CASE EVENT DATE: 20171103
